FAERS Safety Report 5515028-8 (Version None)
Quarter: 2007Q4

REPORT INFORMATION
  Report Type: 
  Country: None (occurrence: None)
  Receive Date: 20071113
  Receipt Date: 20061121
  Transmission Date: 20080405
  Serious: No
  Sender: FDA-Public Use
  Company Number: A0628303A

PATIENT
  Age: 68 Year
  Sex: Female

DRUGS (11)
  1. COREG [Suspect]
     Dosage: 25MG TWICE PER DAY
     Route: 048
     Dates: start: 20050501
  2. POTASSIUM CHLORIDE [Concomitant]
  3. LASIX [Concomitant]
  4. PACERONE [Concomitant]
  5. ACCUPRIL [Concomitant]
  6. VYTORIN [Concomitant]
  7. IMDUR [Concomitant]
  8. PROPYLTHIOURACIL [Concomitant]
  9. GLUCOTROL [Concomitant]
  10. DIGOXIN [Concomitant]
  11. PLAVIX [Concomitant]

REACTIONS (1)
  - ALOPECIA [None]
